FAERS Safety Report 14739225 (Version 4)
Quarter: 2023Q1

REPORT INFORMATION
  Report Type: Spontaneous
  Country: US (occurrence: US)
  Receive Date: 20180410
  Receipt Date: 20230315
  Transmission Date: 20230418
  Serious: Yes (Death, Other)
  Sender: FDA-Public Use
  Company Number: US-TAKEDA-2018TUS008933

PATIENT

DRUGS (49)
  1. PROTONIX [Suspect]
     Active Substance: PANTOPRAZOLE SODIUM
     Indication: Product used for unknown indication
     Dosage: UNK
     Route: 048
     Dates: start: 199901, end: 201606
  2. PROTONIX [Suspect]
     Active Substance: PANTOPRAZOLE SODIUM
     Dosage: UNK
     Route: 048
     Dates: start: 200001, end: 201712
  3. PREVACID [Suspect]
     Active Substance: LANSOPRAZOLE
     Indication: Product used for unknown indication
     Dosage: UNK
     Route: 048
     Dates: start: 199901, end: 201606
  4. PREVACID [Suspect]
     Active Substance: LANSOPRAZOLE
     Dosage: UNK
     Route: 048
     Dates: start: 200001, end: 201712
  5. DEXILANT [Suspect]
     Active Substance: DEXLANSOPRAZOLE
     Indication: Product used for unknown indication
     Dosage: UNK
     Route: 048
     Dates: start: 199901, end: 201606
  6. PREVACID 24 HR [Suspect]
     Active Substance: LANSOPRAZOLE
     Indication: Gastrooesophageal reflux disease
     Dosage: UNK
     Route: 048
     Dates: start: 199901, end: 201606
  7. PREVACID 24 HR [Suspect]
     Active Substance: LANSOPRAZOLE
     Dosage: UNK
     Route: 048
     Dates: start: 200001, end: 201712
  8. PREVACID 24 HR [Suspect]
     Active Substance: LANSOPRAZOLE
     Dosage: 15 MILLIGRAM, QD
     Route: 048
     Dates: start: 2009, end: 2014
  9. PRILOSEC [Suspect]
     Active Substance: OMEPRAZOLE MAGNESIUM
     Indication: Product used for unknown indication
     Dosage: UNK
     Route: 048
     Dates: start: 199901, end: 201606
  10. NEXIUM [Suspect]
     Active Substance: ESOMEPRAZOLE MAGNESIUM
     Indication: Product used for unknown indication
     Dosage: UNK
     Route: 048
     Dates: start: 199901, end: 201606
  11. NEXIUM 24HR [Suspect]
     Active Substance: ESOMEPRAZOLE MAGNESIUM
     Indication: Product used for unknown indication
     Dosage: UNK
     Route: 048
     Dates: end: 201606
  12. NEXIUM 24HR [Suspect]
     Active Substance: ESOMEPRAZOLE MAGNESIUM
     Dosage: UNK
     Route: 048
     Dates: start: 199901, end: 201606
  13. OMEPRAZOLE [Suspect]
     Active Substance: OMEPRAZOLE
     Indication: Gastrooesophageal reflux disease
     Dosage: UNK
     Route: 048
     Dates: start: 199901, end: 201606
  14. OMEPRAZOLE [Suspect]
     Active Substance: OMEPRAZOLE
     Dosage: UNK
     Route: 048
     Dates: start: 200001, end: 201712
  15. OMEPRAZOLE [Suspect]
     Active Substance: OMEPRAZOLE
     Dosage: 20 MILLIGRAM, QD
     Route: 048
     Dates: start: 2003, end: 2009
  16. OMEPRAZOLE [Suspect]
     Active Substance: OMEPRAZOLE
     Dosage: 20 MILLIGRAM, QD
     Route: 048
     Dates: start: 20140416, end: 20140819
  17. CARDURA [Concomitant]
     Active Substance: DOXAZOSIN MESYLATE
     Dosage: UNK
  18. ZESTRIL [Concomitant]
     Active Substance: LISINOPRIL
     Dosage: UNK
  19. CLARITIN [Concomitant]
     Active Substance: LORATADINE
     Dosage: UNK
  20. CLARITIN [Concomitant]
     Active Substance: LORATADINE
     Dosage: UNK
  21. CLARITIN [Concomitant]
     Active Substance: LORATADINE
     Dosage: UNK
  22. CLARITIN [Concomitant]
     Active Substance: LORATADINE
     Dosage: UNK
  23. COZAAR [Concomitant]
     Active Substance: LOSARTAN POTASSIUM
     Dosage: UNK
  24. NORVASC [Concomitant]
     Active Substance: AMLODIPINE BESYLATE
     Dosage: UNK
  25. COREG [Concomitant]
     Active Substance: CARVEDILOL
     Dosage: UNK
  26. COREG [Concomitant]
     Active Substance: CARVEDILOL
     Dosage: UNK
  27. COREG [Concomitant]
     Active Substance: CARVEDILOL
     Dosage: UNK
  28. COREG [Concomitant]
     Active Substance: CARVEDILOL
     Dosage: UNK
  29. COREG [Concomitant]
     Active Substance: CARVEDILOL
     Dosage: UNK
  30. PROSCAR [Concomitant]
     Active Substance: FINASTERIDE
     Dosage: UNK
  31. ANASPAZ [Concomitant]
     Active Substance: HYOSCYAMINE SULFATE
     Dosage: UNK
  32. ANASPAZ [Concomitant]
     Active Substance: HYOSCYAMINE SULFATE
     Dosage: UNK
  33. ANASPAZ [Concomitant]
     Active Substance: HYOSCYAMINE SULFATE
     Dosage: UNK
  34. ANASPAZ [Concomitant]
     Active Substance: HYOSCYAMINE SULFATE
     Dosage: UNK
  35. ANASPAZ [Concomitant]
     Active Substance: HYOSCYAMINE SULFATE
     Dosage: UNK
  36. ZOCOR [Concomitant]
     Active Substance: SIMVASTATIN
     Dosage: UNK
  37. ZOCOR [Concomitant]
     Active Substance: SIMVASTATIN
     Dosage: UNK
  38. ZOCOR [Concomitant]
     Active Substance: SIMVASTATIN
     Dosage: UNK
  39. ZOCOR [Concomitant]
     Active Substance: SIMVASTATIN
     Dosage: UNK
  40. ZOCOR [Concomitant]
     Active Substance: SIMVASTATIN
     Dosage: UNK
  41. TYLENOL [Concomitant]
     Active Substance: ACETAMINOPHEN
     Dosage: UNK
  42. FINASTERIDE [Concomitant]
     Active Substance: FINASTERIDE
     Indication: Prostatic disorder
     Dosage: UNK
     Dates: start: 2014, end: 2018
  43. DOXAZOSIN [Concomitant]
     Active Substance: DOXAZOSIN MESYLATE
     Indication: Blood pressure abnormal
     Dosage: UNK
     Dates: start: 2014, end: 2018
  44. AMLODIPINE [Concomitant]
     Active Substance: AMLODIPINE BESYLATE
     Indication: Blood pressure abnormal
     Dosage: UNK
     Dates: start: 2014, end: 2018
  45. CARVEDILOL [Concomitant]
     Active Substance: CARVEDILOL
     Indication: Blood pressure abnormal
     Dosage: UNK
     Dates: start: 2014, end: 2018
  46. HYOSCYAMINE [Concomitant]
     Active Substance: HYOSCYAMINE
     Indication: Bladder spasm
     Dosage: UNK
     Dates: start: 2014, end: 2018
  47. IRON [Concomitant]
     Active Substance: IRON
     Dosage: UNK
     Dates: start: 2018
  48. TUMS [Concomitant]
     Active Substance: CALCIUM CARBONATE
     Dosage: UNK
     Dates: start: 1980, end: 1990
  49. ROLAIDS [Concomitant]
     Active Substance: CALCIUM CARBONATE\MAGNESIUM HYDROXIDE
     Dosage: UNK
     Dates: start: 1980, end: 1990

REACTIONS (6)
  - Arrhythmia [Fatal]
  - Coronary artery disease [Fatal]
  - Acute kidney injury [Unknown]
  - Renal failure [Unknown]
  - Nephrogenic anaemia [Unknown]
  - Chronic kidney disease [Not Recovered/Not Resolved]

NARRATIVE: CASE EVENT DATE: 20140401
